FAERS Safety Report 4455141-X (Version None)
Quarter: 2004Q3

REPORT INFORMATION
  Report Type: 
  Country: None (occurrence: None)
  Receive Date: 20040907
  Receipt Date: 20040618
  Transmission Date: 20050211
  Serious: Yes (Other)
  Sender: FDA-Public Use
  Company Number: 374014

PATIENT
  Age: 51 Year
  Sex: Female
  Weight: 72.7 kg

DRUGS (10)
  1. COREG [Suspect]
     Route: 048
     Dates: start: 20030708, end: 20040518
  2. SPIRONOLACTONE [Suspect]
     Dosage: 12.5MG PER DAY
     Dates: start: 20031007, end: 20031211
  3. LAMICTAL [Concomitant]
     Indication: BIPOLAR DISORDER
     Dosage: 350MG PER DAY
  4. BENICAR [Concomitant]
     Indication: CARDIOMYOPATHY
     Dates: start: 20030613
  5. NAME UNKNOWN [Concomitant]
     Indication: CARDIOMYOPATHY
     Dosage: 28MG PER DAY
     Dates: start: 20030413
  6. COPAXONE [Concomitant]
     Indication: MULTIPLE SCLEROSIS
     Route: 030
  7. ATIVAN [Concomitant]
     Indication: BIPOLAR DISORDER
     Dosage: 1.5MG PER DAY
     Route: 048
  8. PREMARIN [Concomitant]
     Indication: HORMONE REPLACEMENT THERAPY
     Dosage: .625MG PER DAY
     Route: 048
  9. VIOXX [Concomitant]
     Dosage: 25MG PER DAY
     Route: 048
  10. SYNTHROID [Concomitant]
     Indication: HYPOTHYROIDISM

REACTIONS (3)
  - ALOPECIA [None]
  - BREAST PAIN [None]
  - NORMOCHROMIC NORMOCYTIC ANAEMIA [None]
